FAERS Safety Report 11499803 (Version 1)
Quarter: 2015Q3

REPORT INFORMATION
  Report Type: Spontaneous
  Country: GB (occurrence: GB)
  Receive Date: 20150914
  Receipt Date: 20150914
  Transmission Date: 20151125
  Serious: Yes (Other)
  Sender: FDA-Public Use
  Company Number: GB-ASTRAZENECA-2015SE87385

PATIENT
  Age: 39 Year
  Sex: Male

DRUGS (10)
  1. QUETIAPINE [Suspect]
     Active Substance: QUETIAPINE
     Indication: DEPRESSION
     Dosage: VARIABLE DOSES
     Route: 048
     Dates: start: 2011
  2. BEZAFIBRATE [Concomitant]
     Active Substance: BEZAFIBRATE
  3. MIRTAZAPINE. [Concomitant]
     Active Substance: MIRTAZAPINE
  4. DEPAKOTE [Concomitant]
     Active Substance: DIVALPROEX SODIUM
  5. ESCITALOPRAM [Concomitant]
     Active Substance: ESCITALOPRAM OXALATE
  6. DIAZEPAM. [Concomitant]
     Active Substance: DIAZEPAM
  7. ZOPICLONE [Concomitant]
     Active Substance: ZOPICLONE
  8. QUETIAPINE [Suspect]
     Active Substance: QUETIAPINE
     Indication: BIPOLAR I DISORDER
     Dosage: VARIABLE DOSES
     Route: 048
     Dates: start: 2011
  9. RAMIPRIL. [Concomitant]
     Active Substance: RAMIPRIL
  10. SIMVASTATIN. [Concomitant]
     Active Substance: SIMVASTATIN

REACTIONS (4)
  - Glucose tolerance impaired [Unknown]
  - Hypertriglyceridaemia [Not Recovered/Not Resolved]
  - Proteinuria [Not Recovered/Not Resolved]
  - Pancreatitis acute [Unknown]

NARRATIVE: CASE EVENT DATE: 2014
